FAERS Safety Report 5772344-2 (Version None)
Quarter: 2008Q2

REPORT INFORMATION
  Report Type: 
  Country: None (occurrence: None)
  Receive Date: 20080613
  Receipt Date: 20080606
  Transmission Date: 20081010
  Serious: Yes (Hospitalization)
  Sender: FDA-Public Use
  Company Number: GB-ROCHE-568800

PATIENT
  Sex: Female
  Weight: 70.7 kg

DRUGS (3)
  1. ORLISTAT [Suspect]
     Indication: OBESITY
     Route: 048
     Dates: start: 20080303, end: 20080409
  2. INSULIN MIXTARD 30 HM [Concomitant]
     Dosage: REPORTED AS INSULIN MIXITARD DOSAGE 13 IU MORNING AND 13 IU EVENING
     Route: 058
  3. IRBESARTAN [Concomitant]
     Dosage: REPORTED AS IRBESARTEN DOSAGE 150 MG MORNING
     Route: 048

REACTIONS (2)
  - JAUNDICE [None]
  - MALAISE [None]
